FAERS Safety Report 11661572 (Version 2)
Quarter: 2015Q4

REPORT INFORMATION
  Report Type: Spontaneous
  Country: US (occurrence: US)
  Receive Date: 20151026
  Receipt Date: 20151026
  Transmission Date: 20160304
  Serious: No
  Sender: FDA-Public Use
  Company Number: US-MEDA-2012020179

PATIENT
  Age: 43 Year
  Sex: Female

DRUGS (2)
  1. MEDROL [Concomitant]
     Active Substance: METHYLPREDNISOLONE
     Indication: HYPERSENSITIVITY
     Dosage: AS DIRECTED ON THE DOSEPACK
     Route: 048
     Dates: start: 20111123, end: 20111129
  2. ASTEPRO [Suspect]
     Active Substance: AZELASTINE HYDROCHLORIDE
     Indication: RHINITIS ALLERGIC
     Dates: start: 20111122, end: 20120208

REACTIONS (4)
  - Pruritus [Not Recovered/Not Resolved]
  - Eyelid oedema [Recovered/Resolved]
  - Nasal oedema [Recovered/Resolved]
  - Skin exfoliation [Recovered/Resolved]

NARRATIVE: CASE EVENT DATE: 20111213
